FAERS Safety Report 7277713-X (Version None)
Quarter: 2011Q1

REPORT INFORMATION
  Report Type: 
  Country: None (occurrence: None)
  Receive Date: 20110207
  Receipt Date: 20110201
  Transmission Date: 20110831
  Serious: No
  Sender: FDA-Public Use
  Company Number: US-PFIZER INC-2011023930

PATIENT
  Sex: Female

DRUGS (2)
  1. LYRICA [Suspect]
     Indication: FIBROMYALGIA
     Dosage: 50 MG, 2X/DAY
  2. MILNACIPRAN [Concomitant]
     Dosage: 50 MG, 2X/DAY

REACTIONS (1)
  - DRUG EFFECT DECREASED [None]
